FAERS Safety Report 13450394 (Version 2)
Quarter: 2017Q2

REPORT INFORMATION
  Report Type: Report from Study
  Country: NL (occurrence: NL)
  Receive Date: 20170418
  Receipt Date: 20170620
  Transmission Date: 20170830
  Serious: Yes (Hospitalization, Other)
  Sender: FDA-Public Use
  Company Number: NL-AMGEN-NLDSL2017056125

PATIENT
  Age: 70 Year
  Sex: Male

DRUGS (9)
  1. XGEVA [Suspect]
     Active Substance: DENOSUMAB
     Dosage: UNK
     Route: 058
  2. PREDNISON [Concomitant]
     Active Substance: PREDNISONE
     Dosage: 5 MG, BID
  3. XGEVA [Suspect]
     Active Substance: DENOSUMAB
     Dosage: UNK
     Route: 058
  4. METOCLOPRAM [Concomitant]
     Active Substance: METOCLOPRAMIDE
     Dosage: 10 MG, TID
  5. ACETYLSALICYLZUUR [Concomitant]
     Active Substance: ASPIRIN
     Dosage: 80 MG, QD
  6. SIMVASTATINE [Concomitant]
     Active Substance: SIMVASTATIN
     Dosage: 20 MG, QD
  7. PANTOPRAZOL [Concomitant]
     Active Substance: PANTOPRAZOLE SODIUM
     Dosage: 40 MG, QD
  8. DOCETAXEL. [Concomitant]
     Active Substance: DOCETAXEL
  9. XGEVA [Suspect]
     Active Substance: DENOSUMAB
     Indication: PROPHYLAXIS
     Dosage: 120 MG (IN 1.70 ML), Q4WK
     Route: 058

REACTIONS (2)
  - Neutropenia [Unknown]
  - Sepsis [Recovered/Resolved]

NARRATIVE: CASE EVENT DATE: 20170329
